FAERS Safety Report 18514238 (Version 1)
Quarter: 2020Q4

REPORT INFORMATION
  Report Type: Spontaneous
  Country: FR (occurrence: FR)
  Receive Date: 20201118
  Receipt Date: 20201118
  Transmission Date: 20210114
  Serious: Yes (Other)
  Sender: FDA-Public Use
  Company Number: FR-CELLTRION INC.-2020FR031610

PATIENT

DRUGS (2)
  1. 5-ASA [Concomitant]
     Active Substance: MESALAMINE
     Indication: IMMUNOSUPPRESSANT DRUG THERAPY
  2. INFLIXIMAB (UNKNOWN) [Suspect]
     Active Substance: INFLIXIMAB
     Indication: CHRONIC GRANULOMATOUS DISEASE
     Dosage: 5 OR 10MG/KG/INFUSION, USUALLY AT 0, 2, AND 6 WEEKS THEN EVERY 4 TO 8 WEEKS (DURATION OF 3.2 YEARS)
     Route: 042

REACTIONS (3)
  - Off label use [Unknown]
  - Drug effective for unapproved indication [Unknown]
  - Folliculitis [Unknown]
